FAERS Safety Report 10493952 (Version 1)
Quarter: 2014Q4

REPORT INFORMATION
  Report Type: Report from Study
  Country: US (occurrence: US)
  Receive Date: 20141003
  Receipt Date: 20141003
  Transmission Date: 20150528
  Serious: Yes (Other)
  Sender: FDA-Public Use
  Company Number: US-BIOGENIDEC-2014BI101161

PATIENT
  Sex: Female

DRUGS (1)
  1. TYSABRI [Suspect]
     Active Substance: NATALIZUMAB
     Indication: MULTIPLE SCLEROSIS
     Route: 042
     Dates: start: 20130403

REACTIONS (6)
  - Somnolence [Recovered/Resolved]
  - Neutralising antibodies positive [Not Recovered/Not Resolved]
  - Fatigue [Recovered/Resolved]
  - Poor venous access [Not Recovered/Not Resolved]
  - Seizure [Recovered/Resolved]
  - Prescribed underdose [Not Recovered/Not Resolved]
